FAERS Safety Report 7408169-1 (Version None)
Quarter: 2011Q2

REPORT INFORMATION
  Report Type: 
  Country: None (occurrence: None)
  Receive Date: 20110412
  Receipt Date: 20110405
  Transmission Date: 20111010
  Serious: Yes (Disabling, Other)
  Sender: FDA-Public Use
  Company Number: US-BAYER-2011-012754

PATIENT
  Sex: Female

DRUGS (4)
  1. BETASERON [Suspect]
     Dosage: UNK
     Dates: start: 20080301, end: 20100921
  2. ALCOWIPES [Suspect]
  3. BETASERON [Suspect]
     Indication: MULTIPLE SCLEROSIS
     Dosage: UNK
     Dates: start: 20030110, end: 20071221
  4. BETASERON [Suspect]
     Dosage: UNK
     Dates: start: 20080123, end: 20080220

REACTIONS (5)
  - INJECTION SITE ABSCESS [None]
  - INJECTION SITE PAIN [None]
  - MUSCULAR WEAKNESS [None]
  - INJECTION SITE INDURATION [None]
  - ACTIVITIES OF DAILY LIVING IMPAIRED [None]
